FAERS Safety Report 8585660 (Version 2)
Quarter: 2013Q2

REPORT INFORMATION
  Report Type: Spontaneous
  Country: US (occurrence: US)
  Receive Date: 20120530
  Receipt Date: 20130530
  Transmission Date: 20140414
  Serious: No
  Sender: FDA-Public Use
  Company Number: US-GLAXOSMITHKLINE-A0963836A

PATIENT
  Age: 36 Year
  Sex: Female

DRUGS (2)
  1. FLOLAN [Suspect]
     Indication: PRODUCT USED FOR UNKNOWN INDICATION
     Dosage: 88NGKM UNKNOWN
     Route: 065
     Dates: start: 20101207
  2. REVATIO [Concomitant]

REACTIONS (9)
  - Dyspnoea [Unknown]
  - Nausea [Unknown]
  - Vomiting [Unknown]
  - Diarrhoea [Unknown]
  - Retching [Unknown]
  - Chest discomfort [Unknown]
  - Erythema [Unknown]
  - Hyperaesthesia [Unknown]
  - Sinusitis [Unknown]
